FAERS Safety Report 20770383 (Version 19)
Quarter: 2025Q2

REPORT INFORMATION
  Report Type: Report from Study
  Country: CO (occurrence: CO)
  Receive Date: 20220429
  Receipt Date: 20250425
  Transmission Date: 20250716
  Serious: Yes (Hospitalization, Other)
  Sender: TAKEDA
  Company Number: CO-TAKEDA-2022TUS028957

PATIENT
  Age: 0 Year
  Sex: Male
  Weight: 8 kg

DRUGS (2)
  1. HUMAN IMMUNOGLOBULIN G\HYALURONIDASE RECOMBINANT HUMAN [Suspect]
     Active Substance: HUMAN IMMUNOGLOBULIN G\HYALURONIDASE (HUMAN RECOMBINANT)
     Indication: Primary immunodeficiency syndrome
     Dosage: 5 GRAM, Q3WEEKS
     Dates: start: 20220426
  2. HUMAN IMMUNOGLOBULIN G\HYALURONIDASE RECOMBINANT HUMAN [Suspect]
     Active Substance: HUMAN IMMUNOGLOBULIN G\HYALURONIDASE (HUMAN RECOMBINANT)
     Dosage: 10 GRAM, MONTHLY
     Dates: end: 20250120

REACTIONS (24)
  - Viral infection [Recovering/Resolving]
  - Intestinal obstruction [Recovering/Resolving]
  - Gingival bleeding [Recovering/Resolving]
  - Epilepsy [Recovering/Resolving]
  - Urinary tract infection [Recovered/Resolved]
  - Stoma site irritation [Recovering/Resolving]
  - Diarrhoea [Recovered/Resolved]
  - Pyrexia [Recovering/Resolving]
  - Dyspnoea [Recovering/Resolving]
  - Respiratory symptom [Recovered/Resolved]
  - Discouragement [Recovered/Resolved]
  - Weight increased [Unknown]
  - Somnolence [Recovering/Resolving]
  - Treatment noncompliance [Unknown]
  - Dysstasia [Unknown]
  - General physical health deterioration [Unknown]
  - Infection [Unknown]
  - Restlessness [Unknown]
  - Inappropriate schedule of product administration [Unknown]
  - Product dose omission issue [Unknown]
  - Incorrect dose administered [Unknown]
  - Product prescribing error [Unknown]
  - Decreased appetite [Recovering/Resolving]
  - Irritability [Unknown]

NARRATIVE: CASE EVENT DATE: 20220601
